FAERS Safety Report 7068538-9 (Version None)
Quarter: 2010Q4

REPORT INFORMATION
  Report Type: 
  Country: None (occurrence: None)
  Receive Date: 20101027
  Receipt Date: 20101027
  Transmission Date: 20110411
  Serious: Yes (Hospitalization)
  Sender: FDA-Public Use
  Company Number: None

PATIENT
  Age: 61 Year
  Sex: Female
  Weight: 97.3 kg

DRUGS (11)
  1. DECITABINE 0.2MG/KG [Suspect]
     Indication: MYELODYSPLASTIC SYNDROME
     Dosage: 0.2 MG/KG SUB-Q 2X/WK  SEE SECTION #5 FOR DATES
     Route: 058
  2. CIPRO [Concomitant]
  3. COLACE [Concomitant]
  4. XANAX [Concomitant]
  5. PRILOSEC [Concomitant]
  6. NORVASC [Concomitant]
  7. ACYCLOVIR SODIUM [Concomitant]
  8. ZOLPIDEM [Concomitant]
  9. ZOLOFT [Concomitant]
  10. HYDROMORPHONE HCL [Concomitant]
  11. ULTRAM [Concomitant]

REACTIONS (6)
  - ASTHENIA [None]
  - CHILLS [None]
  - FATIGUE [None]
  - INFECTION [None]
  - NEUTROPENIA [None]
  - PYREXIA [None]
